FAERS Safety Report 23342946 (Version 1)
Quarter: 2023Q4

REPORT INFORMATION
  Report Type: Spontaneous
  Country: US (occurrence: None)
  Receive Date: 20231226
  Receipt Date: 20231226
  Transmission Date: 20240110
  Serious: Yes (Hospitalization)
  Sender: FDA-Public Use
  Company Number: None

PATIENT
  Sex: Female

DRUGS (1)
  1. PULMOZYME [Suspect]
     Active Substance: DORNASE ALFA
     Indication: Cystic fibrosis
     Dosage: 2.5MG/2.5ML INHALATION??TAKE 2.5 ML VIA NEBULIZER DAILY?
     Route: 055
     Dates: start: 20231102

REACTIONS (3)
  - Respiratory syncytial virus infection [None]
  - Infective pulmonary exacerbation of cystic fibrosis [None]
  - Therapy interrupted [None]
